FAERS Safety Report 25023540 (Version 1)
Quarter: 2025Q1

REPORT INFORMATION
  Report Type: Spontaneous
  Country: ES (occurrence: ES)
  Receive Date: 20250228
  Receipt Date: 20250228
  Transmission Date: 20250408
  Serious: Yes (Disabling, Other)
  Sender: MYLAN
  Company Number: ES-MYLANLABS-2025M1016218

PATIENT
  Age: 1 Year
  Sex: Female

DRUGS (6)
  1. MELPHALAN [Suspect]
     Active Substance: MELPHALAN
     Indication: Congenital retinoblastoma
  2. MELPHALAN [Suspect]
     Active Substance: MELPHALAN
     Indication: Metastatic neoplasm
  3. TOPOTECAN [Suspect]
     Active Substance: TOPOTECAN HYDROCHLORIDE
     Indication: Congenital retinoblastoma
  4. TOPOTECAN [Suspect]
     Active Substance: TOPOTECAN HYDROCHLORIDE
     Indication: Metastatic neoplasm
  5. TOPOTECAN [Suspect]
     Active Substance: TOPOTECAN HYDROCHLORIDE
     Indication: Congenital retinoblastoma
  6. TOPOTECAN [Suspect]
     Active Substance: TOPOTECAN HYDROCHLORIDE
     Indication: Metastatic neoplasm

REACTIONS (6)
  - Retinal detachment [Unknown]
  - Glaucoma [Unknown]
  - Blindness [Unknown]
  - Deafness bilateral [Unknown]
  - Deafness neurosensory [Unknown]
  - Off label use [Unknown]
